FAERS Safety Report 10057210 (Version 2)
Quarter: 2014Q2

REPORT INFORMATION
  Report Type: Spontaneous
  Country: ES (occurrence: ES)
  Receive Date: 20140403
  Receipt Date: 20140425
  Transmission Date: 20141212
  Serious: Yes (Death, Hospitalization)
  Sender: FDA-Public Use
  Company Number: ES-BIOMARINAP-ES-2014-102942

PATIENT
  Age: 34 Year
  Sex: Female

DRUGS (3)
  1. KUVAN [Suspect]
     Indication: PHENYLKETONURIA
  2. LEVODOPA [Concomitant]
     Indication: PRODUCT USED FOR UNKNOWN INDICATION
  3. 5-HYDROXYTRYPTOPHAN [Concomitant]
     Indication: PRODUCT USED FOR UNKNOWN INDICATION

REACTIONS (3)
  - Respiratory failure [Fatal]
  - Pneumonia [Unknown]
  - Choreoathetosis [Unknown]
